FAERS Safety Report 15167559 (Version 1)
Quarter: 2018Q3

REPORT INFORMATION
  Report Type: Spontaneous
  Country: GB (occurrence: GB)
  Receive Date: 20180719
  Receipt Date: 20180719
  Transmission Date: 20181010
  Serious: Yes (Death)
  Sender: FDA-Public Use
  Company Number: GB-TEVA-2018-GB-903273

PATIENT
  Age: 39 Year
  Sex: Male
  Weight: 63.5 kg

DRUGS (10)
  1. TRAMADOL HYDROCHLORIDE. [Concomitant]
     Active Substance: TRAMADOL HYDROCHLORIDE
     Dosage: 200 MILLIGRAM DAILY; REPLACED WITH ZOMORPH AND ORAMORPH
     Route: 065
     Dates: end: 20160627
  2. ZOMORPH [Suspect]
     Active Substance: MORPHINE SULFATE
     Indication: NEUROPATHY PERIPHERAL
     Dosage: 60 MILLIGRAM DAILY;
     Route: 048
     Dates: start: 20160627, end: 20160628
  3. ORAMORPH [Suspect]
     Active Substance: MORPHINE SULFATE
     Indication: NEUROPATHY PERIPHERAL
     Route: 048
     Dates: start: 20160627, end: 20160628
  4. DIAZEPAM. [Concomitant]
     Active Substance: DIAZEPAM
     Indication: ANXIETY
     Route: 065
  5. LYRICA [Concomitant]
     Active Substance: PREGABALIN
     Indication: NEUROPATHY PERIPHERAL
     Route: 065
  6. DULOXETINE HYDROCHLORIDE. [Concomitant]
     Active Substance: DULOXETINE HYDROCHLORIDE
     Indication: DEPRESSION
     Route: 065
  7. PROPRANOLOL HYDROCHLORIDE. [Suspect]
     Active Substance: PROPRANOLOL HYDROCHLORIDE
     Indication: ANXIETY
     Dosage: 320 MILLIGRAM DAILY;
     Route: 048
     Dates: start: 20160627, end: 20160628
  8. BENZYDAMINE [Concomitant]
     Active Substance: BENZYDAMINE
     Route: 050
  9. ZOPICLONE [Concomitant]
     Active Substance: ZOPICLONE
     Indication: SLEEP DISORDER
     Route: 065
  10. NASEPTIN [Concomitant]
     Active Substance: CHLORHEXIDINE HYDROCHLORIDE\NEOMYCIN SULFATE
     Route: 065

REACTIONS (2)
  - Contraindicated drug prescribed [Fatal]
  - Death [Fatal]
